FAERS Safety Report 5723351-7 (Version None)
Quarter: 2008Q2

REPORT INFORMATION
  Report Type: 
  Country: None (occurrence: None)
  Receive Date: 20080429
  Receipt Date: 20080429
  Transmission Date: 20081010
  Serious: Yes (Other)
  Sender: FDA-Public Use
  Company Number: None

PATIENT
  Age: 52 Year
  Sex: Male
  Weight: 84.8226 kg

DRUGS (1)
  1. ZICAM COLD REMEDY NASAL GEL   ZICAM [Suspect]
     Indication: NASOPHARYNGITIS
     Dosage: 1 SQUIRT NASAL
     Route: 045
     Dates: start: 20080409, end: 20080413

REACTIONS (2)
  - ANOSMIA [None]
  - HYPOGEUSIA [None]
